FAERS Safety Report 18243009 (Version 4)
Quarter: 2023Q2

REPORT INFORMATION
  Report Type: Spontaneous
  Country: US (occurrence: US)
  Receive Date: 20200908
  Receipt Date: 20230517
  Transmission Date: 20230721
  Serious: Yes (Other)
  Sender: FDA-Public Use
  Company Number: US-PFIZER INC-2020345024

PATIENT
  Age: 62 Year
  Sex: Female
  Weight: 79.38 kg

DRUGS (13)
  1. PREMARIN [Suspect]
     Active Substance: ESTROGENS, CONJUGATED
     Indication: Hormone replacement therapy
     Dosage: 0.625 MG, 1X/DAY (TAKES ONCE TABLET ONCE PER DAY IN THE MORNING BY MOUTH)
     Route: 048
     Dates: start: 2010
  2. HYDROCHLOROTHIAZIDE\OLMESARTAN MEDOXOMIL [Concomitant]
     Active Substance: HYDROCHLOROTHIAZIDE\OLMESARTAN MEDOXOMIL
     Indication: Hypertension
     Dosage: OLMESARTAN HCTZ 40-12.5MG TABLET BY MOUTH ONCE DAILY, IN THE MORNING
     Route: 048
  3. OMEPRAZOLE [Concomitant]
     Active Substance: OMEPRAZOLE
     Indication: Gastrooesophageal reflux disease
     Dosage: 40 MG, 1X/DAY
     Route: 048
  4. ATORVASTATIN [Concomitant]
     Active Substance: ATORVASTATIN
     Indication: Blood cholesterol increased
     Dosage: 10MG TABLET BY MOUTH ONCE DAILY AT BEDTIME
     Route: 048
  5. CELECOXIB [Concomitant]
     Active Substance: CELECOXIB
     Indication: Arthritis
     Dosage: 200MG CAPSULES BY MOUTH ONCE DAILY
     Route: 048
  6. MONTELUKAST [Concomitant]
     Active Substance: MONTELUKAST SODIUM
     Indication: Hypersensitivity
     Dosage: 10MG TABLETS BY MOUTH ONCE DAILY AT NIGHT
     Route: 048
  7. LEVOCETIRIZINE DIHYDROCHLORIDE [Concomitant]
     Active Substance: LEVOCETIRIZINE DIHYDROCHLORIDE
     Indication: Hypersensitivity
     Dosage: 5MG TABLET BY MOUTH ONCE DAILY
     Route: 048
  8. CARTIA XT [Concomitant]
     Active Substance: DILTIAZEM HYDROCHLORIDE
     Indication: Hypertension
     Dosage: 120/24HR CAPSULES BY MOUTH ONCE DAILY IN THE EVENING
     Route: 048
     Dates: start: 202001
  9. PROLIA [Concomitant]
     Active Substance: DENOSUMAB
     Indication: Osteoporosis
     Dosage: 60MG BY INJECTION EVERY 6 MONTHS
  10. CHOLECALCIFEROL [Concomitant]
     Active Substance: CHOLECALCIFEROL
     Dosage: 10,0000 IU CAPSULE BY MOUTH ONCE DAILY
     Route: 048
  11. CALCIUM\VITAMIN D [Concomitant]
     Active Substance: CALCIUM\VITAMIN D
     Dosage: 1200MG TWO TABLETS BY MOUTH ONCE DAILY
     Route: 048
  12. MINERALS\VITAMINS [Concomitant]
     Active Substance: MINERALS\VITAMINS
     Dosage: ONE TABLET BY MOUTH DAILY
     Route: 048
  13. MINERALS\VITAMINS [Concomitant]
     Active Substance: MINERALS\VITAMINS
     Indication: Supplementation therapy
     Dosage: TWO TABLETS,SPLITS THAT INTO ONE IN THE MORNING AND ONE AT NIGHT
     Route: 048

REACTIONS (12)
  - Cerebrovascular accident [Unknown]
  - Therapeutic response unexpected [Unknown]
  - Intervertebral disc protrusion [Not Recovered/Not Resolved]
  - Paraesthesia [Not Recovered/Not Resolved]
  - Peripheral swelling [Not Recovered/Not Resolved]
  - Headache [Not Recovered/Not Resolved]
  - Muscle spasms [Unknown]
  - Disease recurrence [Unknown]
  - Degenerative bone disease [Unknown]
  - Fluid retention [Not Recovered/Not Resolved]
  - Therapeutic product effect incomplete [Unknown]
  - Product dispensing error [Unknown]

NARRATIVE: CASE EVENT DATE: 20220101
